FAERS Safety Report 22250607 (Version 1)
Quarter: 2023Q2

REPORT INFORMATION
  Report Type: Spontaneous
  Country: US (occurrence: US)
  Receive Date: 20230425
  Receipt Date: 20230425
  Transmission Date: 20230721
  Serious: Yes (Other)
  Sender: FDA-Public Use
  Company Number: US-PFIZER INC-202300165523

PATIENT
  Age: 72 Year
  Sex: Female
  Weight: 68.04 kg

DRUGS (1)
  1. IBRANCE [Suspect]
     Active Substance: PALBOCICLIB
     Indication: Breast cancer female
     Dosage: 75 MG, CYCLIC (EVERY DAY FOR THREE WEEKS AND THEN OFF FOR ONE WEEK)
     Dates: start: 201911

REACTIONS (4)
  - Osteomyelitis [Unknown]
  - Neoplasm progression [Unknown]
  - Body height decreased [Unknown]
  - White blood cell count decreased [Unknown]
